FAERS Safety Report 8228720-1 (Version None)
Quarter: 2012Q1

REPORT INFORMATION
  Report Type: 
  Country: None (occurrence: None)
  Receive Date: 20120322
  Receipt Date: 20120313
  Transmission Date: 20120608
  Serious: Yes (Hospitalization)
  Sender: FDA-Public Use
  Company Number: FR-ASTRAZENECA-2012SE17358

PATIENT
  Age: 14984 Day
  Sex: Male

DRUGS (6)
  1. ALPRAZOLAM [Suspect]
     Indication: ANXIETY DISORDER
     Route: 048
     Dates: start: 20111124, end: 20111205
  2. QUETIAPINE FUMARATE [Suspect]
     Indication: ANXIETY DISORDER
     Route: 048
     Dates: start: 20111124, end: 20111201
  3. TERCIAN [Suspect]
     Dosage: 25 DROPS AT MIDDAY
     Route: 048
     Dates: start: 20111119, end: 20111206
  4. TERCIAN [Suspect]
     Indication: ANXIETY DISORDER
     Dosage: 30 DROPS IN THE MORNING AND 30 DROPS IN THE EVENNING
     Route: 048
     Dates: start: 20111119, end: 20111206
  5. SULFARLEM [Suspect]
     Indication: APTYALISM
     Route: 048
     Dates: start: 20111117, end: 20111206
  6. MIANSERINE [Suspect]
     Indication: DEPRESSION
     Route: 048
     Dates: start: 20111119, end: 20111206

REACTIONS (1)
  - CYTOLYTIC HEPATITIS [None]
